FAERS Safety Report 4931581-7 (Version None)
Quarter: 2006Q1

REPORT INFORMATION
  Report Type: 
  Country: None (occurrence: None)
  Receive Date: 20060303
  Receipt Date: 20060220
  Transmission Date: 20060701
  Serious: Yes (Other)
  Sender: FDA-Public Use
  Company Number: GB-JNJFOC-20060203664

PATIENT
  Sex: Female

DRUGS (4)
  1. CONCERTA [Suspect]
     Route: 048
  2. CONCERTA [Suspect]
     Indication: DRUG USE FOR UNKNOWN INDICATION
     Route: 048
  3. FLUOXETINE HCL [Suspect]
  4. FLUOXETINE HCL [Suspect]
     Indication: DEPRESSION

REACTIONS (4)
  - HALLUCINATION [None]
  - HYPERVENTILATION [None]
  - OVERDOSE [None]
  - TACHYCARDIA [None]
